FAERS Safety Report 6004640-8 (Version None)
Quarter: 2008Q4

REPORT INFORMATION
  Report Type: 
  Country: None (occurrence: None)
  Receive Date: 20081216
  Receipt Date: 20081203
  Transmission Date: 20090506
  Serious: Yes (Hospitalization)
  Sender: FDA-Public Use
  Company Number: US-PFIZER INC-2006035938

PATIENT
  Sex: Male
  Weight: 117.6 kg

DRUGS (3)
  1. INHALED HUMAN INSULIN [Suspect]
     Indication: TYPE 2 DIABETES MELLITUS
     Dosage: 4 MG, 4X/DAY
     Route: 055
     Dates: start: 20060124
  2. GABAPENTIN [Concomitant]
     Route: 048
     Dates: start: 20030905
  3. ATORVASTATIN [Concomitant]
     Route: 048
     Dates: start: 20041012

REACTIONS (3)
  - BLOOD GLUCOSE INCREASED [None]
  - CELLULITIS [None]
  - INFECTED SKIN ULCER [None]
